FAERS Safety Report 5587048-9 (Version None)
Quarter: 2008Q1

REPORT INFORMATION
  Report Type: 
  Country: None (occurrence: None)
  Receive Date: 20080110
  Receipt Date: 20080103
  Transmission Date: 20080703
  Serious: Yes (Other)
  Sender: FDA-Public Use
  Company Number: B0361076A

PATIENT
  Age: 48 Year
  Sex: Female

DRUGS (4)
  1. PAROXETINE HYDROCHLORIDE [Suspect]
     Indication: DEPRESSION
     Route: 048
     Dates: start: 19990301
  2. PAROXETINE HYDROCHLORIDE [Suspect]
     Route: 065
  3. DIAZEPAM [Concomitant]
     Dates: start: 19990601
  4. PROZAC [Concomitant]
     Dates: start: 20070308

REACTIONS (10)
  - ANKLE FRACTURE [None]
  - DIZZINESS [None]
  - DRUG WITHDRAWAL SYNDROME [None]
  - ELECTRIC SHOCK [None]
  - FALL [None]
  - HEADACHE [None]
  - HYPERHIDROSIS [None]
  - NIGHTMARE [None]
  - PALPITATIONS [None]
  - TEARFULNESS [None]
